FAERS Safety Report 5895206-9 (Version None)
Quarter: 2008Q3

REPORT INFORMATION
  Report Type: 
  Country: None (occurrence: None)
  Receive Date: 20080923
  Receipt Date: 20080923
  Transmission Date: 20090109
  Serious: Yes (Death)
  Sender: FDA-Public Use
  Company Number: None

PATIENT
  Age: 83 Year
  Sex: Male
  Weight: 79.3795 kg

DRUGS (2)
  1. CELEXA [Suspect]
     Indication: DEPRESSION
     Dosage: DAILY PO
     Route: 048
     Dates: start: 20080501, end: 20080905
  2. ARICEPT [Suspect]
     Indication: DEMENTIA
     Dosage: BEDTIME PO
     Route: 048
     Dates: start: 20080301, end: 20080905

REACTIONS (2)
  - GUN SHOT WOUND [None]
  - INTENTIONAL SELF-INJURY [None]
